FAERS Safety Report 16383482 (Version 2)
Quarter: 2019Q2

REPORT INFORMATION
  Report Type: Spontaneous
  Country: US (occurrence: US)
  Receive Date: 20190603
  Receipt Date: 20190610
  Transmission Date: 20190711
  Serious: No
  Sender: FDA-Public Use
  Company Number: US-PFIZER INC-2019122587

PATIENT
  Age: 49 Year
  Sex: Male

DRUGS (1)
  1. SUTENT [Suspect]
     Active Substance: SUNITINIB MALATE
     Indication: NEOPLASM MALIGNANT
     Dosage: UNK, CYCLIC (7 DAYS ON AND 7 DAYS OFF)

REACTIONS (6)
  - Pyrexia [Unknown]
  - Sleep disorder [Unknown]
  - Acne [Unknown]
  - Fatigue [Unknown]
  - Influenza [Unknown]
  - Malaise [Unknown]
